FAERS Safety Report 6284897-9 (Version None)
Quarter: 2009Q3

REPORT INFORMATION
  Report Type: 
  Country: None (occurrence: None)
  Receive Date: 20090727
  Receipt Date: 20090717
  Transmission Date: 20100115
  Serious: Yes (Hospitalization)
  Sender: FDA-Public Use
  Company Number: B0585668A

PATIENT
  Age: 58 Year
  Sex: Female
  Weight: 91 kg

DRUGS (1)
  1. ORLISTAT [Suspect]
     Indication: OBESITY
     Dosage: 360MG PER DAY
     Route: 048
     Dates: start: 20060601, end: 20060803

REACTIONS (1)
  - THROMBOCYTOPENIA [None]
